FAERS Safety Report 6885416-6 (Version None)
Quarter: 2010Q3

REPORT INFORMATION
  Report Type: 
  Country: None (occurrence: None)
  Receive Date: 20100729
  Receipt Date: 20090206
  Transmission Date: 20110219
  Serious: Yes (Other)
  Sender: FDA-Public Use
  Company Number: US-PFIZER INC-2008158054

PATIENT
  Sex: Female

DRUGS (1)
  1. CELEBREX [Suspect]
     Indication: ARTHRITIS
     Dosage: UNIT DOSE: UNKNOWN;

REACTIONS (5)
  - ATAXIA [None]
  - DYSPNOEA [None]
  - EAR PAIN [None]
  - HYPERTENSION [None]
  - MALAISE [None]
